FAERS Safety Report 8002181-X (Version None)
Quarter: 2011Q4

REPORT INFORMATION
  Report Type: 
  Country: None (occurrence: None)
  Receive Date: 20111220
  Receipt Date: 20111213
  Transmission Date: 20120403
  Serious: Yes (Other)
  Sender: FDA-Public Use
  Company Number: 2011S1001469

PATIENT
  Age: 43 Year
  Sex: Female

DRUGS (17)
  1. TRAZODONE HCL [Concomitant]
  2. DICLOFENAC SODIUM [Concomitant]
  3. FLONASE [Concomitant]
  4. OMEPRAZOLE [Concomitant]
  5. ASPIRIN [Concomitant]
  6. ADVAIR DISKUS 100/50 [Concomitant]
  7. LASIX [Concomitant]
  8. LIVALO [Suspect]
     Dosage: 4 MG;1X;PO
     Route: 048
     Dates: start: 20110808, end: 20111017
  9. O2 [Concomitant]
  10. LISINOPRIL [Concomitant]
  11. METOPROLOL TARTRATE [Concomitant]
  12. NITROGLYCERIN [Concomitant]
  13. PERCOCET [Concomitant]
  14. SPIRIVA [Concomitant]
  15. REQUIP [Concomitant]
  16. DIPHENHYDRAMINE HCL [Concomitant]
  17. KETOPROFEN [Concomitant]

REACTIONS (3)
  - ALANINE AMINOTRANSFERASE INCREASED [None]
  - ASPARTATE AMINOTRANSFERASE INCREASED [None]
  - BLOOD ALKALINE PHOSPHATASE INCREASED [None]
